FAERS Safety Report 9629653 (Version 1)
Quarter: 2013Q4

REPORT INFORMATION
  Report Type: Spontaneous
  Country: US (occurrence: US)
  Receive Date: 20131017
  Receipt Date: 20131017
  Transmission Date: 20140711
  Serious: Yes (Other)
  Sender: FDA-Public Use
  Company Number: US-PFIZER INC-2013293851

PATIENT
  Age: 34 Year
  Sex: Male
  Weight: 94 kg

DRUGS (1)
  1. VANCOMYCIN HCL [Suspect]
     Indication: ENDOCARDITIS
     Dosage: 1000 MG, 3X/DAY (EVERY 8 HOURS)
     Route: 042

REACTIONS (3)
  - Blood creatinine increased [Unknown]
  - Nephropathy toxic [Unknown]
  - Renal impairment [Unknown]
